FAERS Safety Report 4490396-7 (Version None)
Quarter: 2004Q3

REPORT INFORMATION
  Report Type: 
  Country: None (occurrence: None)
  Receive Date: 20040921
  Receipt Date: 20031120
  Transmission Date: 20050211
  Serious: Yes (Death, Hospitalization)
  Sender: FDA-Public Use
  Company Number: 163-20785-03110461

PATIENT
  Age: 81 Year
  Sex: Male
  Weight: 102.9665 kg

DRUGS (7)
  1. THALOMID [Suspect]
     Indication: HEPATIC NEOPLASM MALIGNANT
     Dosage: 200 MG, DAILY, ORAL
     Route: 048
     Dates: start: 20031112, end: 20031118
  2. EPIRUBICIN [Suspect]
     Indication: HEPATIC NEOPLASM MALIGNANT
     Dosage: 20 MG/M2, WEEKLY, INTRAVENOUS
     Route: 042
     Dates: start: 20031112, end: 20031112
  3. LASIX [Concomitant]
  4. LEVOFLOXACIN [Concomitant]
  5. AMILORIDE (AMILORIDE) [Concomitant]
  6. ACIPHEX [Concomitant]
  7. CELEBREX [Concomitant]

REACTIONS (12)
  - ABDOMINAL DISTENSION [None]
  - ANOREXIA [None]
  - DEATH [None]
  - DYSPNOEA EXERTIONAL [None]
  - FATIGUE [None]
  - HEPATIC PAIN [None]
  - LABORATORY TEST ABNORMAL [None]
  - LYMPHOMA [None]
  - NAUSEA [None]
  - PLEURAL EFFUSION [None]
  - PULMONARY EMBOLISM [None]
  - VOMITING [None]
